FAERS Safety Report 16537461 (Version 1)
Quarter: 2019Q3

REPORT INFORMATION
  Report Type: Spontaneous
  Country: US (occurrence: US)
  Receive Date: 20190708
  Receipt Date: 20190708
  Transmission Date: 20191004
  Serious: Yes (Death, Hospitalization, Other)
  Sender: FDA-Public Use
  Company Number: US-STRIDES ARCOLAB LIMITED-2019SP005738

PATIENT
  Age: 58 Year
  Sex: Female

DRUGS (6)
  1. PREDNISOLONE. [Suspect]
     Active Substance: PREDNISOLONE
     Indication: IMMUNOSUPPRESSANT DRUG THERAPY
     Dosage: UNK
     Route: 065
  2. HUMAN ALPHA1 PROTEINASE INHIBITOR [Concomitant]
     Indication: ALPHA-1 ANTI-TRYPSIN DEFICIENCY
     Dosage: UNK
     Route: 065
  3. TACROLIMUS. [Suspect]
     Active Substance: TACROLIMUS
     Indication: IMMUNOSUPPRESSANT DRUG THERAPY
     Dosage: UNK
     Route: 065
  4. HUMAN ALPHA1 PROTEINASE INHIBITOR [Concomitant]
     Dosage: UNK, DOSE INCREASED
     Route: 065
  5. MYCOPHENOLATE MOFETIL. [Suspect]
     Active Substance: MYCOPHENOLATE MOFETIL
     Indication: IMMUNOSUPPRESSANT DRUG THERAPY
     Dosage: UNK
     Route: 065
  6. DOXORUBICIN [Suspect]
     Active Substance: DOXORUBICIN
     Indication: SARCOMA OF SKIN
     Dosage: 40 MG/M2, EVERY 3 WEEKS
     Route: 065

REACTIONS (13)
  - Multiple organ dysfunction syndrome [Unknown]
  - Transplant dysfunction [Unknown]
  - Bronchiolitis [Unknown]
  - Nodule [Unknown]
  - Dyspnoea exertional [Unknown]
  - Deep vein thrombosis [Unknown]
  - Respiratory tract infection viral [Unknown]
  - Transplant rejection [Unknown]
  - Fatigue [Unknown]
  - Septic shock [Unknown]
  - Respiratory tract infection fungal [Unknown]
  - Sarcoma of skin [Fatal]
  - Pneumonia staphylococcal [Unknown]
